FAERS Safety Report 4994508-8 (Version None)
Quarter: 2006Q2

REPORT INFORMATION
  Report Type: 
  Country: None (occurrence: None)
  Receive Date: 20060505
  Receipt Date: 20051019
  Transmission Date: 20061013
  Serious: Yes (Hospitalization, Other)
  Sender: FDA-Public Use
  Company Number: US-MERCK-0510USA07933

PATIENT
  Age: 71 Year
  Sex: Female
  Weight: 57 kg

DRUGS (2)
  1. VIOXX [Suspect]
     Indication: ARTHRITIS
     Route: 048
     Dates: start: 20001031, end: 20040910
  2. EXCEDRIN (MIGRAINE) [Concomitant]
     Route: 065

REACTIONS (4)
  - ACCIDENT [None]
  - ADVERSE EVENT [None]
  - CEREBROVASCULAR ACCIDENT [None]
  - TRANSIENT ISCHAEMIC ATTACK [None]
